FAERS Safety Report 11704647 (Version 1)
Quarter: 2015Q4

REPORT INFORMATION
  Report Type: Spontaneous
  Country: US (occurrence: US)
  Receive Date: 20151106
  Receipt Date: 20151106
  Transmission Date: 20160304
  Serious: Yes (Other)
  Sender: FDA-Public Use
  Company Number: US-BEH-2015055296

PATIENT
  Sex: Female
  Weight: 91 kg

DRUGS (37)
  1. DICYCLOMINE [Concomitant]
     Active Substance: DICYCLOMINE HYDROCHLORIDE
  2. LYRICA [Concomitant]
     Active Substance: PREGABALIN
  3. MORPHINE [Concomitant]
     Active Substance: MORPHINE
  4. CALCIUM [Concomitant]
     Active Substance: CALCIUM
  5. NITROSTAT [Concomitant]
     Active Substance: NITROGLYCERIN
  6. POTASSIUM [Concomitant]
     Active Substance: POTASSIUM
  7. LOSARTAN. [Concomitant]
     Active Substance: LOSARTAN
  8. METOPROLOL [Concomitant]
     Active Substance: METOPROLOL
  9. PROMETHAZINE - CODEINE [Concomitant]
     Active Substance: CODEINE\PROMETHAZINE
  10. FOLIC ACID. [Concomitant]
     Active Substance: FOLIC ACID
  11. PROAIR HFA [Concomitant]
     Active Substance: ALBUTEROL SULFATE
  12. PRIVIGEN [Suspect]
     Active Substance: HUMAN IMMUNOGLOBULIN G
     Indication: HYPOGAMMAGLOBULINAEMIA
  13. TRAZODONE [Concomitant]
     Active Substance: TRAZODONE HYDROCHLORIDE
  14. ADVAIR HFA [Concomitant]
     Active Substance: FLUTICASONE PROPIONATE\SALMETEROL XINAFOATE
  15. ATELVIA [Concomitant]
     Active Substance: RISEDRONATE SODIUM
  16. DIPHENHYDRAMINE. [Concomitant]
     Active Substance: DIPHENHYDRAMINE
  17. PREDNISONE. [Concomitant]
     Active Substance: PREDNISONE
  18. ISOSORBIDE MONONITRATE. [Concomitant]
     Active Substance: ISOSORBIDE MONONITRATE
  19. SALAGEN [Concomitant]
     Active Substance: PILOCARPINE HYDROCHLORIDE
  20. PRIVIGEN [Suspect]
     Active Substance: HUMAN IMMUNOGLOBULIN G
     Indication: MULTIPLE SCLEROSIS
     Dosage: START DATE: ??-NOV-2014; 5 GM AND 10 GM VIALS
     Route: 042
  21. EPIPEN [Concomitant]
     Active Substance: EPINEPHRINE
  22. SPIRIVA [Concomitant]
     Active Substance: TIOTROPIUM BROMIDE MONOHYDRATE
  23. PRILOSEC [Concomitant]
     Active Substance: OMEPRAZOLE MAGNESIUM
  24. VITAMIN B12 [Concomitant]
     Active Substance: CYANOCOBALAMIN
  25. ACETAMINOPHEN. [Concomitant]
     Active Substance: ACETAMINOPHEN
  26. SODIUM CHLORIDE. [Concomitant]
     Active Substance: SODIUM CHLORIDE
  27. HUMALOG [Concomitant]
     Active Substance: INSULIN LISPRO
  28. CHLORTHALIDONE. [Concomitant]
     Active Substance: CHLORTHALIDONE
  29. PLAQUENIL [Concomitant]
     Active Substance: HYDROXYCHLOROQUINE SULFATE
  30. ALBUTEROL. [Concomitant]
     Active Substance: ALBUTEROL
  31. MAGNESIUM OXIDE. [Concomitant]
     Active Substance: MAGNESIUM OXIDE
  32. VITAMIN D [Concomitant]
     Active Substance: CHOLECALCIFEROL
  33. LEVOXYL [Concomitant]
     Active Substance: LEVOTHYROXINE SODIUM
  34. PRIVIGEN [Suspect]
     Active Substance: HUMAN IMMUNOGLOBULIN G
     Indication: SYSTEMIC LUPUS ERYTHEMATOSUS
  35. LANTUS [Concomitant]
     Active Substance: INSULIN GLARGINE
  36. MYCOPHENOLATE [Concomitant]
     Active Substance: MYCOPHENOLIC ACID
  37. IBUPROFEN. [Concomitant]
     Active Substance: IBUPROFEN

REACTIONS (2)
  - Product use issue [None]
  - Cellulitis [Unknown]
